FAERS Safety Report 12787298 (Version 4)
Quarter: 2017Q2

REPORT INFORMATION
  Report Type: Report from Study
  Country: GB (occurrence: GB)
  Receive Date: 20160927
  Receipt Date: 20170614
  Transmission Date: 20170830
  Serious: Yes (Hospitalization, Other)
  Sender: FDA-Public Use
  Company Number: GB-BRISTOL-MYERS SQUIBB COMPANY-BMS-2016-079229

PATIENT
  Sex: Female

DRUGS (1)
  1. ABATACEPT [Suspect]
     Active Substance: ABATACEPT
     Indication: RHEUMATOID ARTHRITIS
     Dosage: 125 MG, QWK
     Route: 058
     Dates: start: 20150119

REACTIONS (11)
  - Pneumonia [Unknown]
  - Malaise [Unknown]
  - Amnesia [Unknown]
  - Gastrointestinal disorder [Unknown]
  - Rheumatoid arthritis [Unknown]
  - Angina pectoris [Unknown]
  - Cardiac disorder [Unknown]
  - Lung disorder [Unknown]
  - Hospitalisation [Unknown]
  - Infection [Unknown]
  - Chest pain [Unknown]
